FAERS Safety Report 6631215-X (Version None)
Quarter: 2010Q1

REPORT INFORMATION
  Report Type: 
  Country: None (occurrence: None)
  Receive Date: 20100312
  Receipt Date: 20100305
  Transmission Date: 20100710
  Serious: Yes (Hospitalization)
  Sender: FDA-Public Use
  Company Number: US-BIOGENIDEC-2010BI004977

PATIENT
  Age: 45 Year
  Sex: Female

DRUGS (2)
  1. TYSABRI [Suspect]
     Indication: MULTIPLE SCLEROSIS
     Route: 042
     Dates: start: 20071022, end: 20080624
  2. TYSABRI [Suspect]
     Route: 042
     Dates: start: 20090428, end: 20100210

REACTIONS (3)
  - CONVULSION [None]
  - DRUG INEFFECTIVE [None]
  - MEMORY IMPAIRMENT [None]
